FAERS Safety Report 14580569 (Version 1)
Quarter: 2018Q1

REPORT INFORMATION
  Report Type: Spontaneous
  Country: US (occurrence: US)
  Receive Date: 20180228
  Receipt Date: 20180228
  Transmission Date: 20180509
  Serious: No
  Sender: FDA-Public Use
  Company Number: US-INSYS THERAPEUTICS, INC-INS201706-000427

PATIENT
  Age: 52 Year
  Sex: Female

DRUGS (12)
  1. ALPRAZOLAM. [Concomitant]
     Active Substance: ALPRAZOLAM
  2. VITAMIN E [Concomitant]
     Active Substance: .ALPHA.-TOCOPHEROL
  3. CALTRATE [Concomitant]
     Active Substance: CALCIUM CARBONATE
  4. CYMBALTA PARTICLES [Concomitant]
  5. PREVACID [Concomitant]
     Active Substance: LANSOPRAZOLE
  6. MERFORMIN HCI [Concomitant]
  7. XANAX [Concomitant]
     Active Substance: ALPRAZOLAM
  8. SINGULAIR [Concomitant]
     Active Substance: MONTELUKAST SODIUM
  9. OXYCODONE HCI [Concomitant]
  10. AMITRIPTYLINE HCI [Concomitant]
  11. SUBSYS [Suspect]
     Active Substance: FENTANYL
     Indication: BREAKTHROUGH PAIN
     Dates: start: 20170623, end: 20170624
  12. LETROZOLE. [Concomitant]
     Active Substance: LETROZOLE

REACTIONS (8)
  - Eye irritation [Recovered/Resolved]
  - Dry eye [Recovered/Resolved]
  - Dizziness [Recovered/Resolved]
  - Abdominal discomfort [Recovered/Resolved]
  - Somnolence [Recovered/Resolved]
  - Oral discomfort [Recovered/Resolved]
  - Headache [Recovered/Resolved]
  - Dry mouth [Recovered/Resolved]

NARRATIVE: CASE EVENT DATE: 20170624
